FAERS Safety Report 8077609-X (Version None)
Quarter: 2012Q1

REPORT INFORMATION
  Report Type: 
  Country: None (occurrence: None)
  Receive Date: 20120127
  Receipt Date: 20120124
  Transmission Date: 20120608
  Serious: Yes (Other)
  Sender: FDA-Public Use
  Company Number: US-PFIZER INC-2011281553

PATIENT
  Sex: Male

DRUGS (3)
  1. NORVASC [Suspect]
     Indication: HYPERTENSION
     Dosage: 0.5 MG, DAILY
     Dates: start: 20110816, end: 20111011
  2. CATAPRES [Suspect]
     Indication: HYPERTENSION
     Dosage: UNK
     Route: 048
     Dates: start: 20070101
  3. EDARBI [Suspect]
     Indication: HYPERTENSION
     Dosage: 80 MG, 1X/DAY
     Route: 048
     Dates: start: 20110816, end: 20111011

REACTIONS (3)
  - SYNCOPE [None]
  - HYPOTENSION [None]
  - RENAL IMPAIRMENT [None]
